FAERS Safety Report 7776001-2 (Version None)
Quarter: 2011Q3

REPORT INFORMATION
  Report Type: 
  Country: None (occurrence: None)
  Receive Date: 20110923
  Receipt Date: 20110914
  Transmission Date: 20111222
  Serious: Yes (Other)
  Sender: FDA-Public Use
  Company Number: US-GENENTECH-324765

PATIENT
  Age: 60 Year
  Sex: Female

DRUGS (6)
  1. PREDNISONE [Suspect]
     Dosage: 10 MG, UNK
  2. XOLAIR [Suspect]
     Indication: ASTHMA
     Dosage: 375 MG, Q2W
  3. PREDNISONE [Suspect]
     Indication: PRODUCT USED FOR UNKNOWN INDICATION
     Dosage: 50 MG, X3
     Dates: start: 20110101, end: 20110501
  4. PREDNISONE [Suspect]
     Dosage: 40 MG, UNK
  5. PREDNISONE [Suspect]
     Dosage: 30 MG, UNK
  6. PREDNISONE [Suspect]
     Dosage: 20 MG, UNK

REACTIONS (1)
  - LUNG DISORDER [None]
